FAERS Safety Report 6199756-X (Version None)
Quarter: 2009Q2

REPORT INFORMATION
  Report Type: 
  Country: None (occurrence: None)
  Receive Date: 20090519
  Receipt Date: 20090420
  Transmission Date: 20091009
  Serious: Yes (Life-Threatening, Hospitalization, Other)
  Sender: FDA-Public Use
  Company Number: 2009S1006921

PATIENT
  Age: 50 Year
  Sex: Male

DRUGS (1)
  1. DICLOFENAC (DICLOFENAC) [Suspect]
     Indication: MUSCLE STRAIN

REACTIONS (9)
  - DISSEMINATED INTRAVASCULAR COAGULATION [None]
  - DUODENAL PERFORATION [None]
  - FIBRIN D DIMER INCREASED [None]
  - GASTRIC ULCER [None]
  - GASTROINTESTINAL MUCOSAL NECROSIS [None]
  - HAEMATEMESIS [None]
  - JEJUNAL PERFORATION [None]
  - PERITONITIS [None]
  - POST PROCEDURAL BILE LEAK [None]
